FAERS Safety Report 6685168-9 (Version None)
Quarter: 2010Q2

REPORT INFORMATION
  Report Type: 
  Country: None (occurrence: None)
  Receive Date: 20100416
  Receipt Date: 20100408
  Transmission Date: 20101027
  Serious: No
  Sender: FDA-Public Use
  Company Number: JP-PFIZER INC-2010031998

PATIENT
  Age: 60 Year
  Sex: Female

DRUGS (5)
  1. CADUET [Suspect]
     Indication: HYPERTENSION
     Dosage: 5 MG/5 MG
     Route: 048
     Dates: start: 20091216
  2. CADUET [Suspect]
     Indication: DYSLIPIDAEMIA
  3. ESTRADIOL [Concomitant]
     Route: 062
     Dates: start: 20091026
  4. PROVERA [Concomitant]
     Route: 048
     Dates: start: 20091026
  5. ARTIST [Concomitant]
     Route: 048
     Dates: start: 20091202

REACTIONS (1)
  - HIGH DENSITY LIPOPROTEIN DECREASED [None]
